FAERS Safety Report 17604590 (Version 11)
Quarter: 2025Q3

REPORT INFORMATION
  Report Type: Spontaneous
  Country: US (occurrence: US)
  Receive Date: 20200331
  Receipt Date: 20250821
  Transmission Date: 20251021
  Serious: Yes (Other)
  Sender: PFIZER
  Company Number: US-PFIZER INC-2020132104

PATIENT
  Age: 80 Year
  Sex: Female
  Weight: 73.03 kg

DRUGS (19)
  1. XELJANZ XR [Suspect]
     Active Substance: TOFACITINIB CITRATE
     Indication: Rheumatoid arthritis
     Dosage: 11 MG, 1X/DAY
     Route: 048
     Dates: start: 20190821
  2. CLARITIN-D NOS [Concomitant]
     Active Substance: LORATADINE\PSEUDOEPHEDRINE SULFATE
  3. VITAMIN B12 [Concomitant]
     Active Substance: CYANOCOBALAMIN
  4. CLARITHROMYCIN [Concomitant]
     Active Substance: CLARITHROMYCIN
  5. LOSARTAN [Concomitant]
     Active Substance: LOSARTAN
  6. ACETAMINOPHEN\OXYCODONE HYDROCHLORIDE\OXYCODONE TEREPHTHALATE [Concomitant]
     Active Substance: ACETAMINOPHEN\OXYCODONE HYDROCHLORIDE\OXYCODONE TEREPHTHALATE
  7. AMITRIPTYLINE HYDROCHLORIDE [Concomitant]
     Active Substance: AMITRIPTYLINE HYDROCHLORIDE
  8. APIXABAN [Concomitant]
     Active Substance: APIXABAN
  9. ASCORBIC [Concomitant]
  10. CYANOCOBALAMIN [Concomitant]
     Active Substance: CYANOCOBALAMIN
  11. FERROUS SULFATE [Concomitant]
     Active Substance: FERROUS SULFATE
  12. LATANOPROST [Concomitant]
     Active Substance: LATANOPROST
  13. LORATADINE [Concomitant]
     Active Substance: LORATADINE
  14. OMEPRAZOLE [Concomitant]
     Active Substance: OMEPRAZOLE
  15. OXYCODONE [Concomitant]
     Active Substance: OXYCODONE
  16. PREDNISONE [Concomitant]
     Active Substance: PREDNISONE
  17. HERBALS\PLANTAGO OVATA SEED COAT [Concomitant]
     Active Substance: HERBALS\PLANTAGO OVATA SEED COAT
  18. PUMPKIN [Concomitant]
     Active Substance: PUMPKIN
  19. VIBEGRON [Concomitant]
     Active Substance: VIBEGRON

REACTIONS (7)
  - Hip fracture [Unknown]
  - Tibia fracture [Unknown]
  - Osteolysis [Unknown]
  - Musculoskeletal stiffness [Unknown]
  - Gait disturbance [Unknown]
  - Eye disorder [Not Recovered/Not Resolved]
  - Memory impairment [Unknown]

NARRATIVE: CASE EVENT DATE: 20190101
